FAERS Safety Report 8610052 (Version 2)
Quarter: 2012Q4

REPORT INFORMATION
  Report Type: 
  Country: US (occurrence: US)
  Receive Date: 20120612
  Receipt Date: 20121129
  Transmission Date: 20130627
  Serious: Yes (Other)
  Sender: FDA-Public Use
  Company Number: US-PFIZER INC-2012137050

PATIENT
  Age: 59 Year
  Sex: Female

DRUGS (3)
  1. NORVASC [Suspect]
     Dosage: 5 mg, 1x/day (One POQD)
     Route: 048
  2. HYZAAR [Concomitant]
     Dosage: UNK
  3. Z-PACK [Concomitant]
     Dosage: UNK

REACTIONS (3)
  - Loss of consciousness [Unknown]
  - Balance disorder [Unknown]
  - Blood pressure inadequately controlled [Unknown]
